FAERS Safety Report 9439166 (Version 1)
Quarter: 2013Q3

REPORT INFORMATION
  Report Type: Spontaneous
  Country: FR (occurrence: FR)
  Receive Date: 20130802
  Receipt Date: 20130802
  Transmission Date: 20140515
  Serious: Yes (Death)
  Sender: FDA-Public Use
  Company Number: FR-ASTRAZENECA-2013SE60179

PATIENT
  Age: 19344 Day
  Sex: Male

DRUGS (6)
  1. XEROQUEL [Suspect]
     Indication: BIPOLAR DISORDER
     Route: 048
     Dates: start: 20120301
  2. XEROQUEL [Suspect]
     Indication: BIPOLAR DISORDER
     Route: 048
  3. EFFEXOR [Concomitant]
     Route: 048
  4. GLUCOPHAGE [Concomitant]
     Indication: TYPE 2 DIABETES MELLITUS
  5. ZYPREXA [Concomitant]
     Dates: end: 20130301
  6. DEPAKOTE [Concomitant]
     Dates: end: 20130531

REACTIONS (1)
  - Sudden death [Fatal]
